FAERS Safety Report 7913950-6 (Version None)
Quarter: 2011Q4

REPORT INFORMATION
  Report Type: 
  Country: None (occurrence: None)
  Receive Date: 20111115
  Receipt Date: 20111103
  Transmission Date: 20120403
  Serious: Yes (Hospitalization)
  Sender: FDA-Public Use
  Company Number: US-ACTELION-A-NJ2011-54896

PATIENT

DRUGS (3)
  1. TRACLEER [Suspect]
     Indication: PULMONARY ARTERIAL HYPERTENSION
     Dosage: UNK
     Route: 048
     Dates: start: 20061003
  2. OXYGEN [Concomitant]
  3. REVATIO [Concomitant]

REACTIONS (3)
  - HAEMORRHAGE [None]
  - SWELLING [None]
  - GASTROINTESTINAL DISORDER [None]
